FAERS Safety Report 16047850 (Version 13)
Quarter: 2020Q1

REPORT INFORMATION
  Report Type: Report from Study
  Country: US (occurrence: US)
  Receive Date: 20190307
  Receipt Date: 20200131
  Transmission Date: 20200409
  Serious: Yes (Hospitalization)
  Sender: FDA-Public Use
  Company Number: US-ACTELION-A-NJ2018-177913

PATIENT
  Age: 26 Year
  Sex: Male
  Weight: 58.96 kg

DRUGS (10)
  1. VELETRI [Suspect]
     Active Substance: EPOPROSTENOL
     Indication: PULMONARY HYPERTENSION
     Dosage: 32 NG/KG, PER MIN
     Route: 042
  2. VELETRI [Suspect]
     Active Substance: EPOPROSTENOL
     Dosage: 22 NG/KG, PER MIN
     Route: 042
  3. VELETRI [Suspect]
     Active Substance: EPOPROSTENOL
     Dosage: 26 NG/KG, PER MIN
     Route: 042
     Dates: start: 20180730
  4. VELETRI [Suspect]
     Active Substance: EPOPROSTENOL
     Dosage: 28 NG/KG, PER MIN
     Route: 042
  5. VELETRI [Suspect]
     Active Substance: EPOPROSTENOL
     Dosage: 16 NG/KG, PER MIN
     Route: 042
  6. OPSUMIT [Suspect]
     Active Substance: MACITENTAN
     Indication: PULMONARY HYPERTENSION
     Dosage: 10 MG, QD
     Route: 048
     Dates: start: 20180911
  7. VELETRI [Suspect]
     Active Substance: EPOPROSTENOL
     Dosage: 34 NG/KG, PER MIN
     Route: 042
  8. VELETRI [Suspect]
     Active Substance: EPOPROSTENOL
     Dosage: 36 NG/KG, PER MIN
     Route: 042
  9. VELETRI [Suspect]
     Active Substance: EPOPROSTENOL
     Dosage: 18 NG/KG, PER MIN
     Route: 042
  10. TADALAFIL. [Concomitant]
     Active Substance: TADALAFIL
     Dosage: 40 MG, QD
     Dates: start: 20180809

REACTIONS (34)
  - Cardiac valve disease [Recovering/Resolving]
  - Device physical property issue [Unknown]
  - Catheter site discharge [Unknown]
  - Dizziness [Unknown]
  - Gastrooesophageal reflux disease [Unknown]
  - Condition aggravated [Unknown]
  - Pneumonia [Unknown]
  - Stress [Unknown]
  - Abdominal pain upper [Unknown]
  - Unevaluable event [Unknown]
  - Nausea [Unknown]
  - Insomnia [Unknown]
  - Headache [Unknown]
  - Joint swelling [Unknown]
  - Pulmonary congestion [Unknown]
  - Cough [Unknown]
  - Cardiac disorder [Recovering/Resolving]
  - Pleural effusion [Recovered/Resolved]
  - Congenital cardiovascular anomaly [Recovering/Resolving]
  - Vomiting [Unknown]
  - Flushing [Unknown]
  - Pulmonary oedema [Unknown]
  - Dyspnoea exertional [Unknown]
  - Complication associated with device [Recovered/Resolved]
  - Dermatitis contact [Unknown]
  - Diarrhoea [Unknown]
  - Catheter site erythema [Unknown]
  - Pain [Unknown]
  - Fatigue [Unknown]
  - Secretion discharge [Unknown]
  - Chest pain [Unknown]
  - Lower respiratory tract infection [Unknown]
  - Device dislocation [Recovered/Resolved]
  - Feeling abnormal [Not Recovered/Not Resolved]

NARRATIVE: CASE EVENT DATE: 20180821
